FAERS Safety Report 7384291-3 (Version None)
Quarter: 2011Q1

REPORT INFORMATION
  Report Type: 
  Country: None (occurrence: None)
  Receive Date: 20110330
  Receipt Date: 20110324
  Transmission Date: 20110831
  Serious: Yes (Other)
  Sender: FDA-Public Use
  Company Number: US-MERCK-1102USA02924

PATIENT
  Age: 71 Year
  Sex: Male

DRUGS (2)
  1. IVEMEND [Suspect]
     Indication: PROPHYLAXIS OF NAUSEA AND VOMITING
     Route: 042
  2. IVEMEND [Suspect]
     Route: 042
     Dates: start: 20100221

REACTIONS (6)
  - INFUSION SITE DISCOMFORT [None]
  - INFUSION SITE PHLEBITIS [None]
  - INFUSION SITE ERYTHEMA [None]
  - INFUSION SITE PAIN [None]
  - INFUSION SITE URTICARIA [None]
  - PAIN IN EXTREMITY [None]
